FAERS Safety Report 5002910-3 (Version None)
Quarter: 2006Q2

REPORT INFORMATION
  Report Type: 
  Country: None (occurrence: None)
  Receive Date: 20060516
  Receipt Date: 20060508
  Transmission Date: 20061013
  Serious: Yes (Hospitalization)
  Sender: FDA-Public Use
  Company Number: PHBS2006IN06800

PATIENT
  Age: 30 Year
  Sex: Male

DRUGS (2)
  1. MULTIVITAMIN [Concomitant]
  2. VOVERAN [Suspect]
     Indication: BACK PAIN
     Dosage: 3 ML/DAY
     Route: 030

REACTIONS (6)
  - BRONCHOSPASM [None]
  - FATIGUE [None]
  - PRURITUS [None]
  - RASH [None]
  - RESTLESSNESS [None]
  - URTICARIA [None]
